FAERS Safety Report 4290617-X (Version None)
Quarter: 2004Q1

REPORT INFORMATION
  Report Type: 
  Country: None (occurrence: None)
  Receive Date: 20040209
  Receipt Date: 20040128
  Transmission Date: 20041129
  Serious: Yes (Other)
  Sender: FDA-Public Use
  Company Number: US062803

PATIENT
  Age: 39 Year
  Sex: Male

DRUGS (1)
  1. ENBREL [Suspect]
     Indication: REITER'S SYNDROME
     Dosage: 25 MG, 2 IN 1 WEEKS, SC
     Route: 058
     Dates: start: 19990101, end: 20031201

REACTIONS (3)
  - GINGIVAL BLEEDING [None]
  - MYELODYSPLASTIC SYNDROME [None]
  - PANCYTOPENIA [None]
